FAERS Safety Report 5235598-7 (Version None)
Quarter: 2007Q1

REPORT INFORMATION
  Report Type: 
  Country: None (occurrence: None)
  Receive Date: 20061208
  Receipt Date: 20060503
  Transmission Date: 20070707
  Serious: Yes (Other)
  Sender: FDA-Public Use
  Company Number: 2006UW08607

PATIENT
  Age: 75 Year
  Sex: Female
  Weight: 72.121 kg

DRUGS (6)
  1. CRESTOR [Suspect]
     Indication: BLOOD CHOLESTEROL INCREASED
     Dosage: 5 MG QD PO
     Route: 048
     Dates: start: 20060101, end: 20060201
  2. ZETIA [Concomitant]
  3. TRIAMTERENE [Concomitant]
  4. ASPIRIN [Concomitant]
  5. CIPRO [Concomitant]
  6. NEXIUM ORAL [Concomitant]

REACTIONS (3)
  - INFLUENZA LIKE ILLNESS [None]
  - MYALGIA [None]
  - PYREXIA [None]
